FAERS Safety Report 4267816-6 (Version None)
Quarter: 2004Q1

REPORT INFORMATION
  Report Type: 
  Country: None (occurrence: None)
  Receive Date: 20040109
  Receipt Date: 20031103
  Transmission Date: 20041129
  Serious: No
  Sender: FDA-Public Use
  Company Number: US-GLAXOSMITHKLINE-A0432608A

PATIENT
  Age: 81 Year
  Sex: Female
  Weight: 68.2 kg

DRUGS (5)
  1. WELLBUTRIN [Suspect]
     Indication: DEPRESSION
     Dosage: 300MG PER DAY
     Route: 048
  2. BUPROPRION HCL [Suspect]
     Indication: DEPRESSION
  3. HEART MEDICATION [Concomitant]
  4. ANTIHYPERTENSIVES [Concomitant]
  5. LOPRESSOR [Concomitant]

REACTIONS (6)
  - CONFUSIONAL STATE [None]
  - MEDICATION ERROR [None]
  - NIGHTMARE [None]
  - PALPITATIONS [None]
  - TREATMENT NONCOMPLIANCE [None]
  - URINARY RETENTION [None]
